FAERS Safety Report 8291288-8 (Version None)
Quarter: 2012Q2

REPORT INFORMATION
  Report Type: 
  Country: None (occurrence: None)
  Receive Date: 20120413
  Receipt Date: 20120409
  Transmission Date: 20120825
  Serious: Yes (Other)
  Sender: FDA-Public Use
  Company Number: ACO_29750_2012

PATIENT
  Age: 48 Year
  Sex: Female

DRUGS (8)
  1. TRAZODONE HCL [Concomitant]
  2. NORVASC [Concomitant]
  3. VALIUM [Concomitant]
  4. AMBIEN [Concomitant]
  5. PRISTIQ [Concomitant]
  6. VITAMIN B12 [Concomitant]
  7. AMPYRA [Suspect]
     Indication: GAIT DISTURBANCE
     Dosage: 10 MG, BID, ORAL
     Route: 048
     Dates: start: 20111201, end: 20120201
  8. SYNTHROID [Concomitant]

REACTIONS (1)
  - CONVULSION [None]
